FAERS Safety Report 19480677 (Version 1)
Quarter: 2021Q2

REPORT INFORMATION
  Report Type: Spontaneous
  Country: US (occurrence: US)
  Receive Date: 20210630
  Receipt Date: 20210630
  Transmission Date: 20210717
  Serious: No
  Sender: FDA-Public Use
  Company Number: US-FOUNDATIONCONSUMERHC-2021-US-009122

PATIENT
  Age: 21 Year
  Sex: Female
  Weight: 49.9 kg

DRUGS (2)
  1. PLAN B ONE?STEP [Suspect]
     Active Substance: LEVONORGESTREL
     Indication: POST COITAL CONTRACEPTION
     Dosage: 1.5 MG TAB X2 USES
     Route: 048
     Dates: start: 20210421, end: 20210423
  2. XANAX [Concomitant]
     Active Substance: ALPRAZOLAM

REACTIONS (1)
  - Vaginal haemorrhage [Not Recovered/Not Resolved]

NARRATIVE: CASE EVENT DATE: 20210428
